FAERS Safety Report 4479856-2 (Version None)
Quarter: 2004Q4

REPORT INFORMATION
  Report Type: 
  Country: None (occurrence: None)
  Receive Date: 20041020
  Receipt Date: 20041014
  Transmission Date: 20050328
  Serious: Yes (Life-Threatening, Hospitalization)
  Sender: FDA-Public Use
  Company Number: PHBS2004LV13658

PATIENT
  Age: 17 Year
  Sex: Female

DRUGS (2)
  1. CLOZAPINE [Suspect]
     Indication: SCHIZOPHRENIA
     Dosage: 400 MG7D
     Route: 048
  2. HALOPERIDOL DECANOATE [Concomitant]
     Dosage: ONCE PER MONTH

REACTIONS (7)
  - CATATONIA [None]
  - FALL [None]
  - HYPOTENSION [None]
  - MUSCLE RIGIDITY [None]
  - PSYCHOTIC DISORDER [None]
  - STUPOR [None]
  - UNRESPONSIVE TO PAIN STIMULI [None]
